FAERS Safety Report 11294675 (Version 1)
Quarter: 2015Q3

REPORT INFORMATION
  Report Type: Spontaneous
  Country: US (occurrence: None)
  Receive Date: 20150722
  Receipt Date: 20150722
  Transmission Date: 20151125
  Serious: No
  Sender: FDA-Public Use
  Company Number: None

PATIENT
  Age: 52 Year
  Sex: Female
  Weight: 113.4 kg

DRUGS (5)
  1. ZYPREXA [Concomitant]
     Active Substance: OLANZAPINE
  2. KERANIQUE FOR WOMEN [Suspect]
     Active Substance: MINOXIDIL
     Indication: ALOPECIA
     Dosage: 1 ML ONCE DAILY SCALP
     Dates: start: 20150720, end: 20150721
  3. ATIVAN [Concomitant]
     Active Substance: LORAZEPAM
  4. MINOXIDIL. [Suspect]
     Active Substance: MINOXIDIL
  5. TRILAPHON [Concomitant]

REACTIONS (2)
  - Vision blurred [None]
  - Optic neuritis [None]

NARRATIVE: CASE EVENT DATE: 20150721
